FAERS Safety Report 20454209 (Version 23)
Quarter: 2024Q1

REPORT INFORMATION
  Report Type: Spontaneous
  Country: CA (occurrence: CA)
  Receive Date: 20220210
  Receipt Date: 20240321
  Transmission Date: 20240410
  Serious: Yes (Other)
  Sender: FDA-Public Use
  Company Number: CA-CELLTRION INC.-2021CA018390

PATIENT

DRUGS (45)
  1. INFLECTRA [Suspect]
     Active Substance: INFLIXIMAB-DYYB
     Indication: Colitis ulcerative
     Dosage: 5 MG/KG AT 0,2,6 WEEKS, THEN EVERY 8 WEEKS
     Route: 042
     Dates: start: 20211117
  2. INFLECTRA [Suspect]
     Active Substance: INFLIXIMAB-DYYB
     Dosage: 5 MG/KG AT 0,2,6 WEEKS, THEN EVERY 8 WEEKS
     Route: 042
     Dates: start: 20211117, end: 20211202
  3. INFLECTRA [Suspect]
     Active Substance: INFLIXIMAB-DYYB
     Dosage: 5 MG/KG AT 0,2,6 WEEKS, THEN EVERY 8 WEEKS
     Route: 042
     Dates: start: 20211202
  4. INFLECTRA [Suspect]
     Active Substance: INFLIXIMAB-DYYB
     Dosage: UNK
     Route: 042
     Dates: start: 20211231
  5. INFLECTRA [Suspect]
     Active Substance: INFLIXIMAB-DYYB
     Dosage: 500 MG, RELOADING DOSE: AT WEEK 0, 2 AND 6, THEN Q 8 WEEKS
     Route: 042
     Dates: start: 20220308
  6. INFLECTRA [Suspect]
     Active Substance: INFLIXIMAB-DYYB
     Dosage: 500 MG, RELOADING DOSE: AT WEEK 0, 2 AND 6, THEN Q 8 WEEKS
     Route: 042
     Dates: start: 20220308, end: 20220614
  7. INFLECTRA [Suspect]
     Active Substance: INFLIXIMAB-DYYB
     Dosage: 500 MG, THEN AT WEEK 0, 2 AND 6, THEN Q 8 WEEKS
     Route: 042
     Dates: start: 20220322
  8. INFLECTRA [Suspect]
     Active Substance: INFLIXIMAB-DYYB
     Dosage: 500 MG, THEN AT WEEK 0, 2 AND 6, THEN Q 8 WEEKS
     Route: 042
     Dates: start: 20220421
  9. INFLECTRA [Suspect]
     Active Substance: INFLIXIMAB-DYYB
     Dosage: 500 MG, THEN AT WEEK 0, 2 AND 6, THEN Q 8 WEEKS
     Route: 042
     Dates: start: 20220614
  10. INFLECTRA [Suspect]
     Active Substance: INFLIXIMAB-DYYB
     Dosage: 1000 MG (10MG/KG), EVERY 4 WEEKS
     Route: 042
     Dates: start: 20220809
  11. INFLECTRA [Suspect]
     Active Substance: INFLIXIMAB-DYYB
     Dosage: 1000 MG (10MG/KG), EVERY 4 WEEKS
     Route: 042
     Dates: start: 20220906
  12. INFLECTRA [Suspect]
     Active Substance: INFLIXIMAB-DYYB
     Dosage: 1000 MG (10MG/KG), EVERY 4 WEEKS
     Route: 042
     Dates: start: 20221004
  13. INFLECTRA [Suspect]
     Active Substance: INFLIXIMAB-DYYB
     Dosage: 1000 MG (10MG/KG), EVERY 4 WEEKS
     Route: 042
     Dates: start: 20221101
  14. INFLECTRA [Suspect]
     Active Substance: INFLIXIMAB-DYYB
     Dosage: 1000 MG (10MG/KG), EVERY 4 WEEKS
     Route: 042
     Dates: start: 20221129
  15. INFLECTRA [Suspect]
     Active Substance: INFLIXIMAB-DYYB
     Dosage: 1000 MG (10MG/KG), EVERY 4 WEEKS
     Route: 042
     Dates: start: 20230103
  16. INFLECTRA [Suspect]
     Active Substance: INFLIXIMAB-DYYB
     Dosage: 1000 MG (10MG/KG), EVERY 4 WEEKS
     Route: 042
     Dates: start: 20230130, end: 20230130
  17. INFLECTRA [Suspect]
     Active Substance: INFLIXIMAB-DYYB
     Dosage: 1000 MG (10MG/KG), EVERY 4 WEEKS
     Route: 042
     Dates: start: 20230227
  18. INFLECTRA [Suspect]
     Active Substance: INFLIXIMAB-DYYB
     Dosage: 1000 MG (10MG/KG), EVERY 4 WEEKS
     Route: 042
     Dates: start: 20230327
  19. INFLECTRA [Suspect]
     Active Substance: INFLIXIMAB-DYYB
     Dosage: 1000 MG (10MG/KG), EVERY 4 WEEKS
     Route: 042
     Dates: start: 20230424, end: 20230424
  20. INFLECTRA [Suspect]
     Active Substance: INFLIXIMAB-DYYB
     Dosage: 1000 MG (10MG/KG), EVERY 4 WEEKS
     Route: 042
     Dates: start: 20230520
  21. INFLECTRA [Suspect]
     Active Substance: INFLIXIMAB-DYYB
     Dosage: 1000 MG (10MG/KG), EVERY 4 WEEKS
     Route: 042
     Dates: start: 20230520
  22. INFLECTRA [Suspect]
     Active Substance: INFLIXIMAB-DYYB
     Dosage: 1000 MG (10MG/KG), EVERY 4 WEEKS
     Route: 042
     Dates: start: 20230619
  23. INFLECTRA [Suspect]
     Active Substance: INFLIXIMAB-DYYB
     Dosage: 1000 MG, 5 WEEKS
     Route: 042
     Dates: start: 20230724
  24. INFLECTRA [Suspect]
     Active Substance: INFLIXIMAB-DYYB
     Dosage: 1000 MG EVERY 4 WEEKS ((10 MG/KG ))
     Route: 042
     Dates: start: 20240104
  25. INFLECTRA [Suspect]
     Active Substance: INFLIXIMAB-DYYB
     Dosage: 1000 MG EVERY 4 WEEKS (10 MG/KG)
     Route: 042
     Dates: start: 20240201
  26. INFLECTRA [Suspect]
     Active Substance: INFLIXIMAB-DYYB
     Dosage: 1000 MG EVERY 4 WEEKS (10 MG/KG) (1000 MG, AFTER 5 WEEKS AND 5 DAYS)
     Route: 042
     Dates: start: 20240313
  27. MESALAMINE [Concomitant]
     Active Substance: MESALAMINE
     Dosage: UNK
  28. AMLODIPINE [Concomitant]
     Active Substance: AMLODIPINE BESYLATE
     Dosage: UNK
  29. AZITHROMYCIN [Concomitant]
     Active Substance: AZITHROMYCIN
     Dosage: UNK
  30. BILASTINE [Concomitant]
     Active Substance: BILASTINE
     Dosage: UNK
  31. CALCIUM CITRATE [Concomitant]
     Active Substance: CALCIUM CITRATE
     Dosage: UNK
  32. CENTRUM FORTE [Concomitant]
     Dosage: UNK, QD
  33. HYDROCORTISONE [Concomitant]
     Active Substance: HYDROCORTISONE
     Dosage: UNK
  34. IRBESARTAN [Concomitant]
     Active Substance: IRBESARTAN
     Dosage: UNK
  35. IRON [Concomitant]
     Active Substance: IRON
     Dosage: UNK
  36. KETODERM [KETOCONAZOLE] [Concomitant]
     Dosage: UNK
  37. MAGNESIUM [Concomitant]
     Active Substance: MAGNESIUM
     Dosage: UNK
  38. METFORMIN [Concomitant]
     Active Substance: METFORMIN HYDROCHLORIDE
     Dosage: UNK
  39. PANTOPRAZOLE [Concomitant]
     Active Substance: PANTOPRAZOLE
     Dosage: UNK
  40. PREDNISONE [Concomitant]
     Active Substance: PREDNISONE
     Dosage: 15 MG PREDNISONE TAPER 15MG WAS STARTED ON 02MAY2022
     Dates: start: 20220502
  41. ROSUVASTATIN [Concomitant]
     Active Substance: ROSUVASTATIN
     Dosage: UNK
  42. MESALAMINE [Concomitant]
     Active Substance: MESALAMINE
     Dosage: UNK
  43. SYMBICORT [Concomitant]
     Active Substance: BUDESONIDE\FORMOTEROL FUMARATE DIHYDRATE
     Dosage: UNK
  44. CYANOCOBALAMIN [Concomitant]
     Active Substance: CYANOCOBALAMIN
     Dosage: UNK
  45. VITAMIN D3 [Concomitant]
     Active Substance: CHOLECALCIFEROL
     Dosage: UNK

REACTIONS (27)
  - Colitis ulcerative [Not Recovered/Not Resolved]
  - Condition aggravated [Recovered/Resolved]
  - Infusion site swelling [Recovering/Resolving]
  - Infusion site erythema [Recovering/Resolving]
  - Infusion site pain [Recovered/Resolved]
  - Sinusitis [Unknown]
  - Sinus disorder [Not Recovered/Not Resolved]
  - Swelling [Not Recovered/Not Resolved]
  - Oropharyngeal pain [Not Recovered/Not Resolved]
  - Headache [Not Recovered/Not Resolved]
  - Swelling face [Unknown]
  - Pharyngeal mass [Not Recovered/Not Resolved]
  - Infusion site discolouration [Unknown]
  - Tenderness [Unknown]
  - Ear discomfort [Not Recovered/Not Resolved]
  - Gastrointestinal disorder [Unknown]
  - Viral parotitis [Unknown]
  - Salivary duct obstruction [Not Recovered/Not Resolved]
  - Pharyngitis [Not Recovered/Not Resolved]
  - Arthralgia [Not Recovered/Not Resolved]
  - Eye disorder [Not Recovered/Not Resolved]
  - Malaise [Unknown]
  - Blood pressure systolic increased [Not Recovered/Not Resolved]
  - Fungal skin infection [Not Recovered/Not Resolved]
  - Condition aggravated [Not Recovered/Not Resolved]
  - Off label use [Unknown]
  - Off label use [Unknown]

NARRATIVE: CASE EVENT DATE: 20211101
